FAERS Safety Report 7050011-5 (Version None)
Quarter: 2010Q4

REPORT INFORMATION
  Report Type: 
  Country: None (occurrence: None)
  Receive Date: 20101018
  Receipt Date: 20101012
  Transmission Date: 20110411
  Serious: Yes (Death, Other)
  Sender: FDA-Public Use
  Company Number: JP-BAYER-201015090BYL

PATIENT
  Age: 62 Year
  Sex: Male

DRUGS (2)
  1. NEXAVAR [Suspect]
     Indication: HEPATIC NEOPLASM MALIGNANT
     Dosage: TOTAL DAILY DOSE: 800 MG  UNIT DOSE: 200 MG
     Route: 048
     Dates: start: 20100901
  2. NEXAVAR [Suspect]
     Route: 048

REACTIONS (4)
  - GASTROINTESTINAL PERFORATION [None]
  - HEPATIC FAILURE [None]
  - HYPONATRAEMIA [None]
  - MALAISE [None]
